FAERS Safety Report 22657648 (Version 1)
Quarter: 2023Q2

REPORT INFORMATION
  Report Type: Other
  Country: TW (occurrence: TW)
  Receive Date: 20230630
  Receipt Date: 20230630
  Transmission Date: 20230721
  Serious: Yes (Other)
  Sender: FDA-Public Use
  Company Number: TW-002147023-NVSC2023TW012190

PATIENT
  Age: 75 Year
  Sex: Male

DRUGS (1)
  1. LUCENTIS [Suspect]
     Active Substance: RANIBIZUMAB
     Indication: Polypoidal choroidal vasculopathy
     Route: 047
     Dates: start: 202111

REACTIONS (9)
  - Retinal exudates [Unknown]
  - Visual acuity reduced [Unknown]
  - Detachment of retinal pigment epithelium [Unknown]
  - Vision blurred [Unknown]
  - Fluorescence angiogram abnormal [Unknown]
  - Retinal disorder [Unknown]
  - Optical coherence tomography abnormal [Unknown]
  - Colour vision tests abnormal [Unknown]
  - Off label use [Unknown]

NARRATIVE: CASE EVENT DATE: 20221229
